FAERS Safety Report 23420193 (Version 1)
Quarter: 2024Q1

REPORT INFORMATION
  Report Type: Spontaneous
  Country: US (occurrence: US)
  Receive Date: 20240119
  Receipt Date: 20240119
  Transmission Date: 20240410
  Serious: Yes (Death, Life-Threatening, Hospitalization, Other)
  Sender: FDA-Public Use
  Company Number: US-MLMSERVICE-20231229-4748514-1

PATIENT
  Age: 74 Year
  Sex: Male

DRUGS (1)
  1. AMIODARONE [Suspect]
     Active Substance: AMIODARONE
     Indication: Product used for unknown indication
     Dosage: FOR MONTHS
     Route: 065

REACTIONS (4)
  - Cardiac arrest [Unknown]
  - Thyrotoxic crisis [Fatal]
  - Hyperthyroidism [Fatal]
  - Cardiogenic shock [Fatal]
